FAERS Safety Report 10353756 (Version 3)
Quarter: 2014Q4

REPORT INFORMATION
  Report Type: Spontaneous
  Country: CZ (occurrence: CZ)
  Receive Date: 20140731
  Receipt Date: 20141127
  Transmission Date: 20150528
  Serious: Yes (Hospitalization, Other)
  Sender: FDA-Public Use
  Company Number: CZ-AMGEN-CZESP2014056565

PATIENT
  Age: 80 Year
  Sex: Female
  Weight: 63.9 kg

DRUGS (10)
  1. MEDOSTATIN [Concomitant]
     Indication: HYPERCHOLESTEROLAEMIA
     Dosage: 20 MG, QD
     Route: 048
  2. DICLOFENAC [Concomitant]
     Active Substance: DICLOFENAC
  3. PROLIA [Suspect]
     Active Substance: DENOSUMAB
     Indication: OSTEOPOROSIS POSTMENOPAUSAL
     Dosage: 60 MG, Q6MO
     Route: 058
     Dates: start: 20111206, end: 20140616
  4. THYROZOL [Concomitant]
     Active Substance: METHIMAZOLE
     Indication: HYPERTHYROIDISM
     Dosage: 5 MG, QD
     Route: 048
  5. PROLIA [Suspect]
     Active Substance: DENOSUMAB
     Indication: OSTEOPOROTIC FRACTURE
  6. BETAMED                            /00008503/ [Concomitant]
  7. MONOTAB [Concomitant]
     Indication: ANGINA PECTORIS
     Dosage: 1/2 TABLET, QD
     Route: 048
  8. CALCICHEW [Concomitant]
     Active Substance: CALCIUM CARBONATE
  9. MODURETIC 5-50 [Concomitant]
     Active Substance: AMILORIDE HYDROCHLORIDE\HYDROCHLOROTHIAZIDE
     Indication: HYPERTENSION
     Dosage: 1/2 TABLET, QD
     Route: 048
  10. VIGANTOL                           /00318501/ [Concomitant]
     Dosage: UNK

REACTIONS (10)
  - Dental fistula [Unknown]
  - Post procedural oedema [Unknown]
  - Tooth deposit [Unknown]
  - Tooth disorder [Unknown]
  - Gingival bleeding [Unknown]
  - Tooth abscess [Unknown]
  - Pathological fracture [Unknown]
  - Osteitis [Unknown]
  - Osteonecrosis of jaw [Recovering/Resolving]
  - Post procedural haematoma [Unknown]

NARRATIVE: CASE EVENT DATE: 2013
